FAERS Safety Report 10136897 (Version 1)
Quarter: 2014Q2

REPORT INFORMATION
  Report Type: Spontaneous
  Country: GB (occurrence: None)
  Receive Date: 20140425
  Receipt Date: 20140425
  Transmission Date: 20141212
  Serious: Yes (Congenital Anomaly)
  Sender: FDA-Public Use
  Company Number: FK201401462

PATIENT
  Sex: Male

DRUGS (6)
  1. METHOTREXATE (MANUFACTURER UNKNOWN) (METHOTREXATE) (METHOTREXATE) [Suspect]
     Indication: PRODUCT USED FOR UNKNOWN INDICATION
     Dosage: 15 MG, 1 IN 1 WK
  2. CALCIUM + VITAMIN D (CALCIUM CARBONATE W/VITAMIN D OS) [Concomitant]
  3. METFORMIN (METFORMIN) [Concomitant]
  4. OMEPRAZOLE (OMEPRAZOLE) [Concomitant]
  5. RAMIPRIL (RAMIPRIL) [Concomitant]
  6. RITUXIMAB (RITUXIMAB) [Concomitant]

REACTIONS (3)
  - Premature baby [None]
  - Heart disease congenital [None]
  - Paternal drugs affecting foetus [None]
